FAERS Safety Report 4553412-X (Version None)
Quarter: 2005Q1

REPORT INFORMATION
  Report Type: 
  Country: None (occurrence: None)
  Receive Date: 20050112
  Receipt Date: 20050103
  Transmission Date: 20050727
  Serious: Yes (Hospitalization)
  Sender: FDA-Public Use
  Company Number: 2005005346

PATIENT
  Age: 79 Year
  Sex: Female
  Weight: 63 kg

DRUGS (6)
  1. ALDACTONE [Suspect]
     Indication: ILL-DEFINED DISORDER
     Dosage: 25 MG (INTERVAL:  EVERY DAY), ORAL
     Route: 048
  2. BETAXOLOL [Suspect]
     Indication: ILL-DEFINED DISORDER
     Dosage: 1 DOSE FORM (INTERVAL:  EVERY DAY), ORAL
     Route: 048
  3. GLICLAZIDE (GLICLAZIDE) [Concomitant]
  4. DURAPATITE (DURAPATITE) [Concomitant]
  5. CHONDROITIN SULFATE SODIUM (CHONDROITIN SULFATE SODIUM) [Concomitant]
  6. RISEDRONATE SODIUM (RISEDRONATE SODIUM) [Concomitant]

REACTIONS (6)
  - ASTHENIA [None]
  - DIZZINESS [None]
  - FALL [None]
  - LOSS OF CONSCIOUSNESS [None]
  - MALAISE [None]
  - ORTHOSTATIC HYPOTENSION [None]
